FAERS Safety Report 23589449 (Version 1)
Quarter: 2024Q1

REPORT INFORMATION
  Report Type: Report from Study
  Country: AR (occurrence: AR)
  Receive Date: 20240304
  Receipt Date: 20240304
  Transmission Date: 20240410
  Serious: Yes (Death, Hospitalization)
  Sender: FDA-Public Use
  Company Number: AR-ABBVIE-5289726

PATIENT
  Age: 51 Year
  Sex: Female

DRUGS (1)
  1. HUMIRA [Suspect]
     Active Substance: ADALIMUMAB
     Indication: Crohn^s disease
     Route: 058
     Dates: start: 20150101

REACTIONS (4)
  - COVID-19 [Fatal]
  - Crohn^s disease [Not Recovered/Not Resolved]
  - Pneumonia [Fatal]
  - Infection [Fatal]

NARRATIVE: CASE EVENT DATE: 20230512
